FAERS Safety Report 12469539 (Version 1)
Quarter: 2016Q2

REPORT INFORMATION
  Report Type: Spontaneous
  Country: US (occurrence: US)
  Receive Date: 20160615
  Receipt Date: 20160615
  Transmission Date: 20160815
  Serious: No
  Sender: FDA-Public Use
  Company Number: US-GALDERMA-US16003186

PATIENT
  Age: 69 Year
  Sex: Female

DRUGS (9)
  1. CLEOCIN T (CLINDAMYCIN TOPICAL) 1% [Concomitant]
     Indication: ROSACEA
     Dosage: 1%
     Route: 061
  2. MIRVASO [Suspect]
     Active Substance: BRIMONIDINE TARTRATE
     Indication: ROSACEA
     Dosage: 0.33%
     Route: 061
     Dates: start: 201505
  3. BENEFIT SHEER TINTED FOUNDATION [Concomitant]
     Route: 061
  4. NEUTROGENA DRY SUN BLOCK [Concomitant]
     Indication: PROPHYLAXIS AGAINST SOLAR RADIATION
     Route: 061
  5. TRIAMCINOLONE ACETONIDE CREAM USP 0.1% [Concomitant]
     Active Substance: TRIAMCINOLONE ACETONIDE
     Indication: ROSACEA
     Dosage: 0.1%
     Route: 061
  6. DOXYCYCLINE. [Concomitant]
     Active Substance: DOXYCYCLINE
     Indication: ROSACEA
     Dosage: 100 MG
     Route: 048
  7. DOXYCYCLINE. [Concomitant]
     Active Substance: DOXYCYCLINE
     Dosage: 100 MG
     Route: 048
  8. CLINDAMYCIN PHOSPHATE. [Concomitant]
     Active Substance: CLINDAMYCIN PHOSPHATE
     Indication: ROSACEA
     Dosage: 1%
     Route: 061
  9. AQUAPHOR SHEER MOISTURIZER [Concomitant]
     Indication: THERAPEUTIC SKIN CARE TOPICAL
     Route: 061

REACTIONS (3)
  - Accidental exposure to product [Not Recovered/Not Resolved]
  - Drug ineffective [Not Recovered/Not Resolved]
  - Therapeutic response unexpected [Not Recovered/Not Resolved]
